FAERS Safety Report 12650802 (Version 1)
Quarter: 2016Q3

REPORT INFORMATION
  Report Type: Spontaneous
  Country: US (occurrence: None)
  Receive Date: 20160812
  Receipt Date: 20160812
  Transmission Date: 20161109
  Serious: Yes (Other)
  Sender: FDA-Public Use
  Company Number: None

PATIENT
  Age: 21 Year
  Sex: Female
  Weight: 49.9 kg

DRUGS (1)
  1. NEXPLANON [Suspect]
     Active Substance: ETONOGESTREL
     Indication: CONTRACEPTION
     Dosage: INSERTED ONCE GIVEN INTO/UNDER THE SKIN

REACTIONS (1)
  - Abnormal withdrawal bleeding [None]

NARRATIVE: CASE EVENT DATE: 20160112
